FAERS Safety Report 5308223-4 (Version None)
Quarter: 2007Q2

REPORT INFORMATION
  Report Type: 
  Country: None (occurrence: None)
  Receive Date: 20070426
  Receipt Date: 20070416
  Transmission Date: 20071010
  Serious: Yes (Hospitalization)
  Sender: FDA-Public Use
  Company Number: 2007UW07556

PATIENT
  Age: 27 Year
  Sex: Female
  Weight: 60 kg

DRUGS (3)
  1. QUETIAPINE FUMARATE [Suspect]
     Route: 048
  2. CLONAZEPAM [Suspect]
     Dosage: 2 CARTONS
  3. PAROXETINE [Suspect]
     Dosage: ONE PACKAGE OF 15 MG PILLS

REACTIONS (6)
  - HEART RATE IRREGULAR [None]
  - HYPERTENSION [None]
  - INTENTIONAL OVERDOSE [None]
  - SOMNOLENCE [None]
  - SUICIDE ATTEMPT [None]
  - TACHYCARDIA [None]
